FAERS Safety Report 24773769 (Version 1)
Quarter: 2024Q4

REPORT INFORMATION
  Report Type: Spontaneous
  Country: US (occurrence: US)
  Receive Date: 20241225
  Receipt Date: 20241225
  Transmission Date: 20250115
  Serious: Yes (Hospitalization)
  Sender: TEVA
  Company Number: US-TEVA-VS-3277343

PATIENT
  Age: 48 Year
  Sex: Male

DRUGS (3)
  1. MEXILETINE [Suspect]
     Active Substance: MEXILETINE
     Indication: Atrial fibrillation
     Dosage: TIME INTERVAL: 0.33333333 DAYS: 3 TIMES PER DAY
     Route: 065
  2. NADOLOL [Suspect]
     Active Substance: NADOLOL
     Indication: Atrial fibrillation
     Route: 065
  3. FLECAINIDE [Suspect]
     Active Substance: FLECAINIDE
     Indication: Atrial fibrillation
     Route: 065

REACTIONS (2)
  - Drug ineffective [Unknown]
  - Drug intolerance [Unknown]
